FAERS Safety Report 24440700 (Version 2)
Quarter: 2024Q4

REPORT INFORMATION
  Report Type: Report from Study
  Country: US (occurrence: US)
  Receive Date: 20241016
  Receipt Date: 20241017
  Transmission Date: 20250115
  Serious: No
  Sender: ROCHE
  Company Number: US-ROCHE-3015785

PATIENT
  Age: 20 Year
  Sex: Male

DRUGS (6)
  1. HEMLIBRA [Suspect]
     Active Substance: EMICIZUMAB-KXWH
     Indication: Haemophilia
     Dosage: INJECT 255MG (0.7ML FROM 105MG VIAL AND 1ML FROM 150MG VIAL) SUBCUTANEOUSLY EVERY 14 DAY(S)
     Route: 058
  2. HEMLIBRA [Suspect]
     Active Substance: EMICIZUMAB-KXWH
     Indication: Factor VIII deficiency
     Dosage: INJECT 255MG (0.7ML FROM 105MG VIAL AND 1ML FROM 150MG VIAL) SUBCUTANEOUSLY EVERY 14 DAY(S)
     Route: 058
  3. HEMLIBRA [Suspect]
     Active Substance: EMICIZUMAB-KXWH
     Indication: Autism spectrum disorder
     Dosage: 60 MG/0.4 ML INJECTION OF 225 MG (1.5 ML)
     Route: 058
  4. HEMLIBRA [Suspect]
     Active Substance: EMICIZUMAB-KXWH
     Dosage: STRENGTH: 105 MG; SUBSEQUENT DOSE: USE 3 ML AS DIRECTED
     Route: 058
  5. HEMLIBRA [Suspect]
     Active Substance: EMICIZUMAB-KXWH
     Route: 058
  6. HEMLIBRA [Suspect]
     Active Substance: EMICIZUMAB-KXWH
     Route: 058

REACTIONS (3)
  - Autism spectrum disorder [Unknown]
  - Off label use [Unknown]
  - Product prescribing error [Unknown]
